FAERS Safety Report 7791723-5 (Version None)
Quarter: 2011Q4

REPORT INFORMATION
  Report Type: 
  Country: None (occurrence: None)
  Receive Date: 20111003
  Receipt Date: 20110921
  Transmission Date: 20120403
  Serious: Yes (Hospitalization)
  Sender: FDA-Public Use
  Company Number: US-BAYER-2011-007480

PATIENT
  Age: 20 Year
  Sex: Female
  Weight: 53.061 kg

DRUGS (1)
  1. YASMIN [Suspect]
     Indication: CONTRACEPTION
     Dosage: UNK
     Dates: start: 20050713, end: 20050819

REACTIONS (6)
  - INJURY [None]
  - PANIC ATTACK [None]
  - OEDEMA PERIPHERAL [None]
  - PAIN [None]
  - MENTAL DISORDER [None]
  - DEEP VEIN THROMBOSIS [None]
